FAERS Safety Report 9279208 (Version 1)
Quarter: 2013Q2

REPORT INFORMATION
  Report Type: Spontaneous
  Country: DE (occurrence: None)
  Receive Date: 20130501
  Receipt Date: 20130501
  Transmission Date: 20140414
  Serious: Yes (Hospitalization)
  Sender: FDA-Public Use
  Company Number: AUR-APL-2013-03328

PATIENT
  Age: 55 Year
  Sex: Female

DRUGS (5)
  1. QUETIAPINE (QUETIAPINE) (QUETIAPINE) [Suspect]
     Indication: PRODUCT USED FOR UNKNOWN INDICATION
     Route: 048
  2. CLOMIPRAMINE (CLOMIPRAMINE) [Suspect]
     Indication: PRODUCT USED FOR UNKNOWN INDICATION
     Route: 048
     Dates: start: 20120716, end: 20120729
  3. PREGABALIN (PREGABALIN) [Concomitant]
  4. LAMOTRIGIN (LAMOTRIGIN) [Concomitant]
  5. EUTHYROX (LEVOTHYROXINE SODIUM)(TABLET)(LEVOTHYROXINE SODIUM) [Suspect]

REACTIONS (2)
  - Urinary hesitation [None]
  - Urinary retention [None]
